FAERS Safety Report 24142308 (Version 4)
Quarter: 2025Q1

REPORT INFORMATION
  Report Type: Spontaneous
  Country: DE (occurrence: DE)
  Receive Date: 20240726
  Receipt Date: 20250122
  Transmission Date: 20250409
  Serious: Yes (Life-Threatening, Hospitalization)
  Sender: SANDOZ
  Company Number: DE-SAMSUNG BIOEPIS-SB-2024-21747

PATIENT
  Age: 53 Year
  Sex: Female

DRUGS (2)
  1. ETANERCEPT [Suspect]
     Active Substance: ETANERCEPT
     Indication: Rheumatoid arthritis
     Dosage: 50 MG, BIW
     Route: 065
     Dates: end: 202407
  2. METHOTREXATE [Suspect]
     Active Substance: METHOTREXATE
     Indication: Rheumatoid arthritis
     Route: 065
     Dates: end: 202407

REACTIONS (6)
  - Cervix carcinoma [Not Recovered/Not Resolved]
  - Squamous cell carcinoma of the cervix [Not Recovered/Not Resolved]
  - Uterine cancer [Not Recovered/Not Resolved]
  - Anaemia postoperative [Not Recovered/Not Resolved]
  - Product use issue [Unknown]
  - Off label use [Unknown]

NARRATIVE: CASE EVENT DATE: 20240401
